FAERS Safety Report 9132173 (Version 1)
Quarter: 2013Q1

REPORT INFORMATION
  Report Type: Report from Study
  Country: US (occurrence: US)
  Receive Date: 20130301
  Receipt Date: 20130301
  Transmission Date: 20140127
  Serious: No
  Sender: FDA-Public Use
  Company Number: US-MYLANLABS-2012S1020010

PATIENT
  Age: 17 Year
  Sex: Female

DRUGS (2)
  1. AMNESTEEM CAPSULES [Suspect]
     Indication: ACNE
     Route: 048
  2. AMNESTEEM CAPSULES [Suspect]
     Indication: ACNE
     Route: 048
     Dates: start: 201205

REACTIONS (2)
  - Lip dry [Not Recovered/Not Resolved]
  - Lip pain [Not Recovered/Not Resolved]
